FAERS Safety Report 12257840 (Version 1)
Quarter: 2016Q2

REPORT INFORMATION
  Report Type: Spontaneous
  Country: FR (occurrence: FR)
  Receive Date: 20160412
  Receipt Date: 20160412
  Transmission Date: 20160815
  Serious: Yes (Other)
  Sender: FDA-Public Use
  Company Number: FR-ELI_LILLY_AND_COMPANY-FR201512007079

PATIENT
  Age: 54 Year
  Sex: Female

DRUGS (11)
  1. BETAXOLOL. [Concomitant]
     Active Substance: BETAXOLOL
     Dosage: UNK, UNKNOWN
     Route: 065
     Dates: start: 20151123
  2. ELIQUIS [Concomitant]
     Active Substance: APIXABAN
     Dosage: UNK, UNKNOWN
     Route: 065
     Dates: start: 20151123
  3. CARBOPLATIN HOSPIRA [Suspect]
     Active Substance: CARBOPLATIN
     Indication: LUNG ADENOCARCINOMA
     Dosage: UNK, CYCLICAL
     Route: 065
     Dates: start: 20151005
  4. ESOMEPRAZOLE [Concomitant]
     Active Substance: ESOMEPRAZOLE
     Dosage: UNK, UNKNOWN
     Route: 065
     Dates: start: 20151123
  5. FOLIC ACID. [Concomitant]
     Active Substance: FOLIC ACID
     Dosage: UNK, UNKNOWN
     Route: 065
     Dates: start: 20151123
  6. FLECAINE [Concomitant]
     Active Substance: FLECAINIDE
     Dosage: UNK, UNKNOWN
     Route: 065
     Dates: start: 20151123
  7. SPIRONOLACTONE. [Concomitant]
     Active Substance: SPIRONOLACTONE
     Dosage: UNK, UNKNOWN
     Route: 065
     Dates: start: 20151123
  8. EXACYL [Concomitant]
     Active Substance: TRANEXAMIC ACID
     Dosage: UNK, UNKNOWN
     Route: 065
     Dates: start: 20151123
  9. IMUREL                             /00001501/ [Concomitant]
     Active Substance: AZATHIOPRINE SODIUM
     Dosage: UNK, UNKNOWN
     Route: 065
     Dates: start: 20151123
  10. ALIMTA [Suspect]
     Active Substance: PEMETREXED DISODIUM
     Indication: LUNG ADENOCARCINOMA
     Dosage: UNK, CYCLICAL
     Route: 065
     Dates: start: 20151005
  11. LEVOTHYROX [Concomitant]
     Active Substance: LEVOTHYROXINE
     Dosage: UNK, UNKNOWN
     Route: 065
     Dates: start: 20151123

REACTIONS (3)
  - Off label use [Unknown]
  - Pemphigoid [Unknown]
  - Thrombocytopenia [Recovered/Resolved]

NARRATIVE: CASE EVENT DATE: 20151209
